FAERS Safety Report 14977292 (Version 2)
Quarter: 2018Q2

REPORT INFORMATION
  Report Type: Spontaneous
  Country: US (occurrence: US)
  Receive Date: 20180606
  Receipt Date: 20180625
  Transmission Date: 20180711
  Serious: No
  Sender: FDA-Public Use
  Company Number: US-AMGEN-USASP2018074599

PATIENT
  Age: 48 Year
  Sex: Female

DRUGS (2)
  1. ENBREL [Suspect]
     Active Substance: ETANERCEPT
     Indication: PRODUCT USED FOR UNKNOWN INDICATION
     Dosage: UNK
     Route: 065
     Dates: start: 20180329, end: 2018
  2. PREDNISONE. [Concomitant]
     Active Substance: PREDNISONE
     Dosage: UNK

REACTIONS (10)
  - Infection [Unknown]
  - Injection site recall reaction [Recovered/Resolved]
  - Incorrect dose administered by device [Unknown]
  - Injection site rash [Recovered/Resolved]
  - Vulvovaginal mycotic infection [Unknown]
  - Drug effect incomplete [Unknown]
  - Injection site mass [Recovered/Resolved]
  - Injection site macule [Recovered/Resolved]
  - Respiratory tract congestion [Not Recovered/Not Resolved]
  - Accidental exposure to product [Unknown]

NARRATIVE: CASE EVENT DATE: 2018
